FAERS Safety Report 4396738-5 (Version None)
Quarter: 2004Q3

REPORT INFORMATION
  Report Type: 
  Country: None (occurrence: None)
  Receive Date: 20040709
  Receipt Date: 20040701
  Transmission Date: 20050211
  Serious: Yes (Death, Congenital Anomaly)
  Sender: FDA-Public Use
  Company Number: 2003EU006398

PATIENT
  Sex: Male

DRUGS (4)
  1. PROGRAF [Suspect]
     Indication: RENAL TRANSPLANT
     Dosage: 9.00 MG  D, INTRA-UTERINE
     Route: 015
  2. CELLCEPT [Suspect]
     Dosage: 500.00 MG/ D, INTRA-UTERINE
     Route: 015
     Dates: start: 20001001, end: 20010101
  3. AZATHIOPRINE [Suspect]
     Dosage: 50.00 MG, UID.QD, INTRA-UTERINE
     Route: 015
     Dates: start: 20010101, end: 20010301
  4. PREDNISONE TAB [Concomitant]

REACTIONS (13)
  - ABNORMAL PALMAR/PLANTAR CREASES [None]
  - ABORTION INDUCED [None]
  - CLEFT LIP AND PALATE [None]
  - CONGENITAL ANOMALY OF ADRENAL GLAND [None]
  - CONGENITAL CENTRAL NERVOUS SYSTEM ANOMALY [None]
  - DRUG EXPOSURE DURING PREGNANCY [None]
  - EXTERNAL AUDITORY CANAL ATRESIA [None]
  - FACIAL DYSMORPHISM [None]
  - HYPERTELORISM OF ORBIT [None]
  - MICROGNATHIA [None]
  - MICROTIA [None]
  - MULTIPLE CONGENITAL ABNORMALITIES [None]
  - PELVIC KIDNEY [None]
